FAERS Safety Report 4432419-7 (Version None)
Quarter: 2004Q3

REPORT INFORMATION
  Report Type: 
  Country: None (occurrence: None)
  Receive Date: 20040820
  Receipt Date: 20040729
  Transmission Date: 20050211
  Serious: Yes (Death)
  Sender: FDA-Public Use
  Company Number: JP_040603604

PATIENT
  Age: 84 Year
  Sex: Male
  Weight: 50 kg

DRUGS (7)
  1. GEMZAR-IV (GEMCITABINE) (GEMCITABINE HYDROCHLORIDE) [Suspect]
     Indication: PANCREATIC CARCINOMA STAGE III
     Dosage: 1200 MG OTHER
     Route: 050
     Dates: start: 20040621, end: 20040621
  2. SEROTONE (AZASETRON HYDROCHLORIDE) [Concomitant]
  3. ADELAVIN (FLAVINE ADENINE DINUCLEOTIDE) [Concomitant]
  4. KAYTWO (MENATETRENONE) [Concomitant]
  5. MEROPENEM TRIHYDRATE [Concomitant]
  6. PAZUFLOXACIN [Concomitant]
  7. OMEPRAZOLE [Concomitant]

REACTIONS (11)
  - BLOOD PRESSURE IMMEASURABLE [None]
  - C-REACTIVE PROTEIN INCREASED [None]
  - CARDIAC ARREST [None]
  - CARDIOMEGALY [None]
  - HAEMOGLOBIN DECREASED [None]
  - HYPOXIA [None]
  - MOUTH BREATHING [None]
  - PULMONARY OEDEMA [None]
  - RESPIRATORY FAILURE [None]
  - VOMITING [None]
  - WHITE BLOOD CELL COUNT DECREASED [None]
